FAERS Safety Report 9313011 (Version 2)
Quarter: 2013Q3

REPORT INFORMATION
  Report Type: Spontaneous
  Country: US (occurrence: US)
  Receive Date: 20130528
  Receipt Date: 20130828
  Transmission Date: 20140515
  Serious: No
  Sender: FDA-Public Use
  Company Number: US-ABBOTT-13P-163-1088424-00

PATIENT
  Age: 47 Year
  Sex: Male
  Weight: 90.8 kg

DRUGS (4)
  1. ANDROGEL [Suspect]
     Indication: BLOOD TESTOSTERONE DECREASED
     Dates: start: 201212, end: 201303
  2. ANDROGEL [Suspect]
     Dates: start: 201303
  3. ALLOPURINOL [Concomitant]
     Indication: GOUT
  4. GEMFIBROZIL [Concomitant]
     Indication: BLOOD TRIGLYCERIDES INCREASED

REACTIONS (2)
  - Semen volume decreased [Not Recovered/Not Resolved]
  - Ejaculation failure [Not Recovered/Not Resolved]
